FAERS Safety Report 5189787-0 (Version None)
Quarter: 2006Q4

REPORT INFORMATION
  Report Type: 
  Country: None (occurrence: None)
  Receive Date: 20061218
  Receipt Date: 20061214
  Transmission Date: 20070319
  Serious: Yes (Life-Threatening)
  Sender: FDA-Public Use
  Company Number: A601353310/WAES0612USA00937

PATIENT
  Age: 45 Year
  Sex: Male

DRUGS (1)
  1. GOLD SODIUM THIOMALATE, [Suspect]
     Indication: JUVENILE ARTHRITIS
     Dosage: INJECTION

REACTIONS (1)
  - HISTIOCYTOSIS HAEMATOPHAGIC [None]
